FAERS Safety Report 13768124 (Version 1)
Quarter: 2017Q3

REPORT INFORMATION
  Report Type: Spontaneous
  Country: MX (occurrence: MX)
  Receive Date: 20170719
  Receipt Date: 20170719
  Transmission Date: 20171127
  Serious: Yes (Hospitalization, Other)
  Sender: FDA-Public Use
  Company Number: MX-TEVA-787299ISR

PATIENT
  Age: 75 Year
  Sex: Female

DRUGS (1)
  1. AZILECT [Suspect]
     Active Substance: RASAGILINE MESYLATE
     Dosage: 100 MILLIGRAM DAILY;
     Route: 048
     Dates: start: 20101218

REACTIONS (4)
  - Heat stroke [Recovered/Resolved]
  - Posture abnormal [Recovered/Resolved]
  - Cerebral infarction [Recovered/Resolved]
  - Asthenopia [Recovered/Resolved]

NARRATIVE: CASE EVENT DATE: 201706
